FAERS Safety Report 4988202-7 (Version None)
Quarter: 2006Q2

REPORT INFORMATION
  Report Type: 
  Country: None (occurrence: None)
  Receive Date: 20060425
  Receipt Date: 20060413
  Transmission Date: 20061013
  Serious: Yes (Hospitalization)
  Sender: FDA-Public Use
  Company Number: 2006050963

PATIENT
  Age: 54 Year
  Sex: Male

DRUGS (4)
  1. ZOLOFT [Suspect]
     Indication: ILL-DEFINED DISORDER
  2. ATORVASTATIN CALCIUM [Suspect]
     Indication: ILL-DEFINED DISORDER
  3. COVERSYL (PERINDOPRIL) [Concomitant]
  4. ASPIRIN [Concomitant]

REACTIONS (4)
  - ALCOHOL POISONING [None]
  - DEPRESSED LEVEL OF CONSCIOUSNESS [None]
  - PARANOIA [None]
  - REFUSAL OF TREATMENT BY PATIENT [None]
